FAERS Safety Report 9284958 (Version 2)
Quarter: 2013Q2

REPORT INFORMATION
  Report Type: Spontaneous
  Country: US (occurrence: US)
  Receive Date: 20130513
  Receipt Date: 20130627
  Transmission Date: 20140414
  Serious: Yes (Other)
  Sender: FDA-Public Use
  Company Number: PHEH2013US010424

PATIENT
  Sex: Female

DRUGS (1)
  1. DIOVAN [Suspect]
     Dosage: 160 MG

REACTIONS (5)
  - Cataract [Unknown]
  - Macular degeneration [Unknown]
  - Fall [Unknown]
  - Back injury [Unknown]
  - Swelling [Recovering/Resolving]
